FAERS Safety Report 17932087 (Version 1)
Quarter: 2020Q2

REPORT INFORMATION
  Report Type: Report from Study
  Country: GB (occurrence: GB)
  Receive Date: 20200623
  Receipt Date: 20200623
  Transmission Date: 20200714
  Serious: Yes (Hospitalization, Other)
  Sender: FDA-Public Use
  Company Number: GB-PFIZER INC-2020238890

PATIENT
  Age: 6 Year
  Sex: Male
  Weight: 21.5 kg

DRUGS (1)
  1. SOMATROPIN. [Suspect]
     Active Substance: SOMATROPIN
     Indication: GROWTH HORMONE DEFICIENCY
     Dosage: 0.7 MG, QD (10MG/1.5 ML)
     Route: 058
     Dates: start: 20170514

REACTIONS (2)
  - Pollakiuria [Not Recovered/Not Resolved]
  - Micturition disorder [Unknown]

NARRATIVE: CASE EVENT DATE: 20171120
